FAERS Safety Report 6992647-3 (Version None)
Quarter: 2010Q3

REPORT INFORMATION
  Report Type: 
  Country: None (occurrence: None)
  Receive Date: 20100917
  Receipt Date: 20100915
  Transmission Date: 20110219
  Serious: Yes (Other)
  Sender: FDA-Public Use
  Company Number: RO-ROCHE-727285

PATIENT

DRUGS (4)
  1. PEGASYS [Suspect]
     Route: 058
  2. PEGASYS [Suspect]
     Route: 058
  3. COPEGUS [Suspect]
     Route: 048
  4. COPEGUS [Suspect]
     Route: 048

REACTIONS (1)
  - TOOTH ABSCESS [None]
